FAERS Safety Report 10075424 (Version 3)
Quarter: 2014Q2

REPORT INFORMATION
  Report Type: Spontaneous
  Country: US (occurrence: US)
  Receive Date: 20140414
  Receipt Date: 20140627
  Transmission Date: 20141212
  Serious: Yes (Other)
  Sender: FDA-Public Use
  Company Number: US-009507513-1404USA006444

PATIENT
  Age: 59 Year
  Sex: Male

DRUGS (2)
  1. JANUMET XR [Suspect]
     Indication: DIABETES MELLITUS
     Dosage: REPORTED AS :JANUMET XR 100/1000
     Route: 048
     Dates: start: 20140325, end: 201403
  2. JANUMET XR [Suspect]
     Dosage: REPORTED AS :JANUMET XR 100/1000
     Route: 048
     Dates: start: 2014

REACTIONS (6)
  - Gallbladder operation [Unknown]
  - Drug ineffective [Not Recovered/Not Resolved]
  - Nausea [Recovered/Resolved]
  - Nausea [Not Recovered/Not Resolved]
  - Vomiting [Recovered/Resolved]
  - Diarrhoea [Recovered/Resolved]
